FAERS Safety Report 8274453 (Version 2)
Quarter: 2012Q4

REPORT INFORMATION
  Report Type: 
  Country: US (occurrence: US)
  Receive Date: 20111205
  Receipt Date: 20121114
  Transmission Date: 20130627
  Serious: Yes (Other)
  Sender: FDA-Public Use
  Company Number: US-PFIZER INC-2011292657

PATIENT
  Sex: Male
  Weight: 97.1 kg

DRUGS (21)
  1. GABAPENTIN [Suspect]
     Indication: FIBROMYALGIA
     Dosage: 600 mg, 4x/day
     Route: 048
     Dates: start: 2007
  2. GABAPENTIN [Suspect]
     Indication: ENTRAPMENT NEUROPATHY
     Dosage: 600 mg, 3x/day
     Route: 048
  3. GABAPENTIN [Suspect]
     Indication: MUSCLE SPASMS
     Dosage: 600 mg, 4x/day
     Route: 048
     Dates: start: 2007, end: 2011
  4. NEURONTIN [Suspect]
     Indication: FIBROMYALGIA
     Dosage: 600 mg, 4x/day
     Dates: start: 2007, end: 2011
  5. NEURONTIN [Suspect]
     Indication: ENTRAPMENT NEUROPATHY
  6. NEURONTIN [Suspect]
     Indication: MUSCLE SPASMS
  7. GABAPENTIN [Suspect]
     Indication: FIBROMYALGIA
     Dosage: 600 mg, 4x/day
     Dates: start: 2007, end: 2011
  8. GABAPENTIN [Suspect]
     Indication: ENTRAPMENT NEUROPATHY
  9. GABAPENTIN [Suspect]
     Indication: MUSCLE SPASMS
  10. TYLENOL [Concomitant]
     Indication: PAIN
     Dosage: UNK
  11. TYLENOL [Concomitant]
     Indication: OSTEOPOROSIS
  12. TYLENOL [Concomitant]
     Indication: OSTEOARTHRITIS
  13. BACLOFEN [Concomitant]
     Indication: PAIN
     Dosage: 10 mg, 3x/day
  14. BACLOFEN [Concomitant]
     Indication: OSTEOARTHRITIS
  15. BACLOFEN [Concomitant]
     Indication: OSTEOPOROSIS
  16. MOTRIN [Concomitant]
     Indication: PAIN
     Dosage: UNK
  17. MOTRIN [Concomitant]
     Indication: OSTEOPOROSIS
  18. MOTRIN [Concomitant]
     Indication: OSTEOARTHRITIS
  19. LIPITOR [Concomitant]
     Dosage: UNK
  20. VITAMIN D [Concomitant]
     Dosage: UNK
  21. TYLENOL W/CODEINE NO. 3 [Concomitant]
     Indication: PAIN
     Dosage: UNK, as needed

REACTIONS (8)
  - Mental disorder [Unknown]
  - Mental impairment [Recovered/Resolved]
  - Amnesia [Recovered/Resolved]
  - Laboratory test abnormal [Unknown]
  - Disturbance in attention [Unknown]
  - Memory impairment [Unknown]
  - Fear of disease [Unknown]
  - Dizziness [Unknown]
